FAERS Safety Report 21271883 (Version 3)
Quarter: 2022Q4

REPORT INFORMATION
  Report Type: Report from Study
  Country: US (occurrence: US)
  Receive Date: 20220830
  Receipt Date: 20221019
  Transmission Date: 20230112
  Serious: Yes (Other)
  Sender: FDA-Public Use
  Company Number: US-ABBVIE-22K-163-4413852-00

PATIENT
  Sex: Female

DRUGS (2)
  1. HUMIRA [Suspect]
     Active Substance: ADALIMUMAB
     Indication: Rheumatoid arthritis
     Dosage: CITRATE FREE
     Route: 058
  2. PFIZER-BIONTECH COVID-19 VACCINE [Concomitant]
     Active Substance: TOZINAMERAN
     Indication: COVID-19 immunisation
     Dosage: TIME INTERVAL: 1 TOTAL
     Route: 030

REACTIONS (16)
  - Eye operation [Unknown]
  - Acne [Unknown]
  - Narrow anterior chamber angle [Unknown]
  - Intraocular pressure increased [Unknown]
  - General symptom [Unknown]
  - Musculoskeletal disorder [Unknown]
  - Ocular rosacea [Unknown]
  - Visual impairment [Unknown]
  - Dry eye [Unknown]
  - Dry mouth [Unknown]
  - Asthma [Unknown]
  - Pneumonia [Unknown]
  - Hypoaesthesia [Unknown]
  - Pulmonary mass [Unknown]
  - Arthralgia [Unknown]
  - Neck pain [Unknown]
